FAERS Safety Report 8415934-0 (Version None)
Quarter: 2012Q2

REPORT INFORMATION
  Report Type: 
  Country: None (occurrence: None)
  Receive Date: 20120606
  Receipt Date: 20120529
  Transmission Date: 20120825
  Serious: No
  Sender: FDA-Public Use
  Company Number: US-ASTRAZENECA-2012SE35717

PATIENT
  Age: 42 Year
  Sex: Female

DRUGS (2)
  1. OTHER MEDICATIONS [Concomitant]
     Indication: INSOMNIA
  2. SEROQUEL XR [Suspect]
     Route: 048

REACTIONS (2)
  - INSOMNIA [None]
  - DRUG DOSE OMISSION [None]
